FAERS Safety Report 16077329 (Version 17)
Quarter: 2022Q1

REPORT INFORMATION
  Report Type: Spontaneous
  Country: US (occurrence: US)
  Receive Date: 20190315
  Receipt Date: 20220224
  Transmission Date: 20220424
  Serious: No
  Sender: FDA-Public Use
  Company Number: US-PFIZER INC-2018431389

PATIENT
  Age: 47 Year
  Sex: Female
  Weight: 122 kg

DRUGS (13)
  1. LYRICA [Suspect]
     Active Substance: PREGABALIN
     Indication: Lumbar spinal stenosis
     Dosage: 75 MG, 2X/DAY
     Route: 048
     Dates: start: 201812
  2. LYRICA [Suspect]
     Active Substance: PREGABALIN
     Indication: Spinal claudication
     Dosage: 150 MG, DAILY (2 CAPSULES OF 75 MG, EVERY EVENING)
     Route: 048
     Dates: start: 20190401, end: 2019
  3. LYRICA [Suspect]
     Active Substance: PREGABALIN
     Indication: Intervertebral disc degeneration
     Dosage: 150 MG, 1X/DAY(TAKE 2 CAPSULES EVERY EVENING)
     Route: 048
     Dates: start: 20190904
  4. LYRICA [Suspect]
     Active Substance: PREGABALIN
     Indication: Back pain
     Dosage: 225 MG, DAILY (75 IN THE MORNING AND 150 MG IN THE EVENING)
     Route: 048
  5. LYRICA [Suspect]
     Active Substance: PREGABALIN
     Indication: Sciatica
     Dosage: 150 MG, 2X/DAY
     Route: 048
  6. LYRICA [Suspect]
     Active Substance: PREGABALIN
     Indication: Neuralgia
     Dosage: 200 MG, 2X/DAY (TAKE 1 CAPSULE (200 MG TOTAL) BY MOUTH 2 TIMES DAILY)
     Route: 048
  7. LYRICA [Suspect]
     Active Substance: PREGABALIN
     Indication: Myofascial pain syndrome
  8. LYRICA [Suspect]
     Active Substance: PREGABALIN
     Indication: Arthralgia
  9. LYRICA [Suspect]
     Active Substance: PREGABALIN
     Indication: Cervical radiculopathy
  10. LYRICA [Suspect]
     Active Substance: PREGABALIN
     Indication: Spinal osteoarthritis
  11. LYRICA [Suspect]
     Active Substance: PREGABALIN
     Indication: Cervical spinal stenosis
  12. ADVIL [Concomitant]
     Active Substance: IBUPROFEN
     Indication: Pain
     Dosage: 800 MG, AS NEEDED (TAKE 1 TABLET THREE TIMES A DAY IF NEEDED)
     Route: 048
  13. MOTRIN [Concomitant]
     Active Substance: IBUPROFEN
     Indication: Pain
     Dosage: 800 MG, AS NEEDED (TAKE 1 TABLET THREE TIMES A DAY IF NEEDED)
     Route: 048

REACTIONS (13)
  - Withdrawal syndrome [Unknown]
  - Restless legs syndrome [Not Recovered/Not Resolved]
  - Condition aggravated [Not Recovered/Not Resolved]
  - Asthenia [Unknown]
  - Insomnia [Unknown]
  - Feeling abnormal [Unknown]
  - Nausea [Unknown]
  - Vomiting [Unknown]
  - Diarrhoea [Unknown]
  - Pain [Unknown]
  - Stress [Unknown]
  - Panic reaction [Unknown]
  - Illness [Unknown]
